FAERS Safety Report 4962276-1 (Version None)
Quarter: 2006Q2

REPORT INFORMATION
  Report Type: 
  Country: None (occurrence: None)
  Receive Date: 20060403
  Receipt Date: 20060403
  Transmission Date: 20061013
  Serious: Yes (Other)
  Sender: FDA-Public Use
  Company Number: None

PATIENT

DRUGS (2)
  1. ACID CONCENTRATE FOR BICARBONATE DIALYSATE [Suspect]
  2. . [Concomitant]

REACTIONS (1)
  - MEDICATION ERROR [None]
